FAERS Safety Report 17485886 (Version 2)
Quarter: 2020Q1

REPORT INFORMATION
  Report Type: Spontaneous
  Country: US (occurrence: US)
  Receive Date: 20200302
  Receipt Date: 20200305
  Transmission Date: 20200409
  Serious: Yes (Disabling, Other)
  Sender: FDA-Public Use
  Company Number: US-DSJP-DSU-2020-106694

PATIENT

DRUGS (4)
  1. TIZANIDINE. [Suspect]
     Active Substance: TIZANIDINE
     Indication: PRODUCT USED FOR UNKNOWN INDICATION
     Route: 065
  2. BENICAR [Suspect]
     Active Substance: OLMESARTAN MEDOXOMIL
     Indication: PRODUCT USED FOR UNKNOWN INDICATION
     Dosage: UNK
     Route: 048
  3. PROCARDIA [Suspect]
     Active Substance: NIFEDIPINE
     Indication: PRODUCT USED FOR UNKNOWN INDICATION
     Route: 065
  4. NIFEDIPINE. [Suspect]
     Active Substance: NIFEDIPINE
     Indication: PRODUCT USED FOR UNKNOWN INDICATION
     Route: 065

REACTIONS (14)
  - Pneumothorax [Unknown]
  - Surgery [Unknown]
  - Sensory loss [Unknown]
  - Lacrimation increased [Unknown]
  - Nausea [Unknown]
  - Polyneuropathy [Unknown]
  - Disability [Unknown]
  - Vision blurred [Unknown]
  - Drug ineffective [Unknown]
  - Blood pressure abnormal [Unknown]
  - Headache [Unknown]
  - Malaise [Unknown]
  - Post-traumatic stress disorder [Unknown]
  - Pain [Unknown]
